FAERS Safety Report 6836426-6 (Version None)
Quarter: 2010Q3

REPORT INFORMATION
  Report Type: 
  Country: None (occurrence: None)
  Receive Date: 20100708
  Receipt Date: 20100624
  Transmission Date: 20110219
  Serious: Yes (Hospitalization)
  Sender: FDA-Public Use
  Company Number: A-NJ2010-37629

PATIENT
  Sex: Female

DRUGS (2)
  1. TRACLEER [Suspect]
     Indication: PULMONARY ARTERIAL HYPERTENSION
     Dosage: ORAL
     Route: 048
     Dates: start: 20040224
  2. COUMADIN [Concomitant]

REACTIONS (2)
  - HAEMATOCHEZIA [None]
  - INTERNATIONAL NORMALISED RATIO ABNORMAL [None]
